FAERS Safety Report 8329802-6 (Version None)
Quarter: 2012Q2

REPORT INFORMATION
  Report Type: 
  Country: None (occurrence: None)
  Receive Date: 20120502
  Receipt Date: 20120425
  Transmission Date: 20120825
  Serious: Yes (Hospitalization, Other)
  Sender: FDA-Public Use
  Company Number: US-BAYER-2011-075601

PATIENT
  Age: 26 Year
  Sex: Female

DRUGS (7)
  1. YASMIN [Suspect]
  2. YAZ [Suspect]
  3. LEVAQUIN [Concomitant]
     Dosage: 250 MG, EVERY DAY
     Route: 048
  4. XANAX [Concomitant]
     Indication: ANXIETY
  5. EPIPEN [Concomitant]
  6. LORTAB [Concomitant]
     Indication: PAIN
     Dosage: 5 MG, 1-2 TABS EVERY 6 HOURS AS NEEDED
     Route: 048
  7. ALBUTEROL [Concomitant]
     Dosage: 1-2 PUFFS, PRN

REACTIONS (4)
  - PULMONARY EMBOLISM [None]
  - DEEP VEIN THROMBOSIS [None]
  - INTESTINAL INFARCTION [None]
  - THROMBOSIS [None]
